FAERS Safety Report 25592056 (Version 1)
Quarter: 2025Q3

REPORT INFORMATION
  Report Type: Report from Study
  Country: BR (occurrence: BR)
  Receive Date: 20250722
  Receipt Date: 20250722
  Transmission Date: 20251021
  Serious: Yes (Other)
  Sender: BOEHRINGER INGELHEIM
  Company Number: BR-BoehringerIngelheim-2025-BI-083412

PATIENT
  Age: 71 Year
  Sex: Female
  Weight: 67 kg

DRUGS (3)
  1. JARDIANCE [Suspect]
     Active Substance: EMPAGLIFLOZIN
     Indication: Diabetes mellitus
     Dosage: ONCE AT LUNCH AND ONCE AT DINNER.
  2. GLYXAMBI [Suspect]
     Active Substance: EMPAGLIFLOZIN\LINAGLIPTIN
     Indication: Diabetes mellitus
     Dosage: FORM STRENGTH: 25/5 MILLIGRAMS.?ONCE A DAY BETWEEN BREAKFAST AND LUNCH.
  3. EMPAGLIFLOZIN\METFORMIN HYDROCHLORIDE [Suspect]
     Active Substance: EMPAGLIFLOZIN\METFORMIN HYDROCHLORIDE
     Indication: Diabetes mellitus
     Dosage: FORM STRENGTH:12.5/850 MILLIGRAMS.?ONCE A DAY BETWEEN BREAKFAST AND LUNCH

REACTIONS (8)
  - Diabetic metabolic decompensation [Unknown]
  - Blood pressure fluctuation [Recovered/Resolved]
  - Blood cholesterol abnormal [Recovered/Resolved]
  - Candida infection [Unknown]
  - Hypertension [Unknown]
  - Blood cholesterol increased [Unknown]
  - Off label use [Recovered/Resolved]
  - Off label use [Unknown]

NARRATIVE: CASE EVENT DATE: 20250301
